FAERS Safety Report 25935943 (Version 1)
Quarter: 2025Q4

REPORT INFORMATION
  Report Type: Report from Study
  Country: CA (occurrence: CA)
  Receive Date: 20251017
  Receipt Date: 20251017
  Transmission Date: 20260118
  Serious: Yes (Hospitalization, Other)
  Sender: JOHNSON AND JOHNSON
  Company Number: CA-JNJFOC-20250629310

PATIENT
  Age: 64 Year
  Sex: Female
  Weight: 68.1 kg

DRUGS (3)
  1. REMICADE [Suspect]
     Active Substance: INFLIXIMAB
     Indication: Crohn^s disease
     Route: 041
     Dates: start: 20250428
  2. REMICADE [Suspect]
     Active Substance: INFLIXIMAB
     Dosage: THERAPY END DATE: 14-OCT-2025
     Route: 041
     Dates: start: 20250820
  3. QUETIAPINE [Suspect]
     Active Substance: QUETIAPINE
     Indication: Product used for unknown indication

REACTIONS (6)
  - Respiratory tract oedema [Recovered/Resolved]
  - Hyponatraemia [Recovering/Resolving]
  - Clostridium difficile infection [Recovering/Resolving]
  - Vitamin B12 deficiency [Unknown]
  - Dizziness [Not Recovered/Not Resolved]
  - Stress [Unknown]

NARRATIVE: CASE EVENT DATE: 20250616
